FAERS Safety Report 4984104-0 (Version None)
Quarter: 2006Q1

REPORT INFORMATION
  Report Type: 
  Country: None (occurrence: None)
  Receive Date: 20060302
  Receipt Date: 20050408
  Transmission Date: 20060701
  Serious: Yes (Hospitalization)
  Sender: FDA-Public Use
  Company Number: 1756

PATIENT
  Sex: Male

DRUGS (2)
  1. TARGRETIN [Suspect]
  2. ALPHA INTERFERON [Concomitant]

REACTIONS (1)
  - PNEUMONIA [None]
